FAERS Safety Report 13961292 (Version 1)
Quarter: 2017Q3

REPORT INFORMATION
  Report Type: Spontaneous
  Country: JP (occurrence: JP)
  Receive Date: 20170912
  Receipt Date: 20170912
  Transmission Date: 20171128
  Serious: Yes (Disabling)
  Sender: FDA-Public Use
  Company Number: JP-009507513-1708JPN001661J

PATIENT
  Age: 63 Year
  Sex: Female

DRUGS (4)
  1. REBETOL [Suspect]
     Active Substance: RIBAVIRIN
     Dosage: UNK
     Route: 048
     Dates: start: 2017
  2. REBETOL [Suspect]
     Active Substance: RIBAVIRIN
     Indication: CHRONIC HEPATITIS C
     Dosage: UNK
     Route: 048
     Dates: start: 20170715, end: 20170728
  3. SOVALDI [Suspect]
     Active Substance: SOFOSBUVIR
     Dosage: UNK
     Route: 048
     Dates: start: 2017
  4. SOVALDI [Suspect]
     Active Substance: SOFOSBUVIR
     Indication: CHRONIC HEPATITIS C
     Dosage: UNK
     Route: 048
     Dates: start: 20170715, end: 20170728

REACTIONS (2)
  - Jaundice [Recovered/Resolved]
  - Nausea [Recovered/Resolved]

NARRATIVE: CASE EVENT DATE: 20170722
